FAERS Safety Report 25115559 (Version 2)
Quarter: 2025Q2

REPORT INFORMATION
  Report Type: Spontaneous
  Country: JP (occurrence: JP)
  Receive Date: 20250324
  Receipt Date: 20250512
  Transmission Date: 20250717
  Serious: No
  Sender: SANOFI AVENTIS
  Company Number: JP-SAKK-2024SA320487AA

PATIENT
  Age: 51 Year
  Sex: Male

DRUGS (1)
  1. FABRAZYME [Suspect]
     Active Substance: AGALSIDASE BETA
     Indication: Fabry^s disease
     Route: 041

REACTIONS (1)
  - No adverse event [Unknown]
